FAERS Safety Report 23286634 (Version 1)
Quarter: 2023Q4

REPORT INFORMATION
  Report Type: Spontaneous
  Country: US (occurrence: US)
  Receive Date: 20231212
  Receipt Date: 20231212
  Transmission Date: 20240109
  Serious: No
  Sender: FDA-Public Use
  Company Number: US-SUN PHARMACEUTICAL INDUSTRIES LTD-2023R1-379494

PATIENT
  Sex: Male

DRUGS (3)
  1. DILTIAZEM [Suspect]
     Active Substance: DILTIAZEM
     Indication: Arthritis
     Dosage: UNK (TWICE A DAY)
     Route: 065
  2. DILTIAZEM [Suspect]
     Active Substance: DILTIAZEM
     Indication: Contusion
  3. DILTIAZEM [Suspect]
     Active Substance: DILTIAZEM
     Indication: Surgery

REACTIONS (10)
  - Nausea [Unknown]
  - Diarrhoea [Unknown]
  - Viral infection [Unknown]
  - Recalled product [Unknown]
  - Product availability issue [Unknown]
  - Abdominal discomfort [Unknown]
  - Lacrimation increased [Unknown]
  - Hypersomnia [Unknown]
  - Hypertension [Unknown]
  - Headache [Unknown]
